FAERS Safety Report 8770599 (Version 1)
Quarter: 2012Q4

REPORT INFORMATION
  Report Type: 
  Country: US (occurrence: US)
  Receive Date: 20120906
  Receipt Date: 20120906
  Transmission Date: 20130627
  Serious: Yes (Hospitalization)
  Sender: FDA-Public Use
  Company Number: US-BAYER-2012-091651

PATIENT
  Age: 37 Year
  Sex: Female
  Weight: 62.59 kg

DRUGS (7)
  1. YASMIN [Suspect]
  2. DIETARY SUPPLEMENTS [Concomitant]
     Dosage: UNK
     Route: 048
     Dates: start: 20070118
  3. VITAMIN C [Concomitant]
     Dosage: UNK
     Route: 048
     Dates: start: 20070118
  4. CALCIUM [Concomitant]
     Dosage: UNK
     Route: 048
     Dates: start: 20070118
  5. DAYQUIL [DEXTROMET HBR,GUAIF,PARACET,PSEUDOEPH HCL] [Concomitant]
     Dosage: UNK
     Route: 048
     Dates: start: 20070118
  6. NYQUIL [Concomitant]
     Dosage: UNK
     Route: 048
     Dates: start: 20070118
  7. DARVOCET-N [Concomitant]
     Dosage: UNK
     Route: 048
     Dates: start: 20070912

REACTIONS (1)
  - Pulmonary embolism [None]
